FAERS Safety Report 11103614 (Version 1)
Quarter: 2015Q2

REPORT INFORMATION
  Report Type: Spontaneous
  Country: IE (occurrence: None)
  Receive Date: 20150507
  Receipt Date: 20150507
  Transmission Date: 20150821
  Serious: Yes (Life-Threatening, Hospitalization)
  Sender: FDA-Public Use
  Company Number: INT_00748_2015

PATIENT
  Age: 42 Year
  Sex: Male

DRUGS (3)
  1. ETOPOSIDE (ETOPOSIDE) [Suspect]
     Active Substance: ETOPOSIDE
     Indication: EXTRAGONADAL PRIMARY GERM CELL TUMOUR MIXED STAGE III
     Dosage: 80 MG/M2, DAYS 1-5 FOR CYCLES 1 AND 2
  2. GRANULOCYTE COLONY STIMULATING FACTOR [Concomitant]
     Active Substance: GRANULOCYTE COLONY-STIMULATING FACTOR NOS
  3. CISPLATIN (CISPLATIN) (HQ SPECIALTY) [Suspect]
     Active Substance: CISPLATIN
     Indication: EXTRAGONADAL PRIMARY GERM CELL TUMOUR MIXED STAGE III
     Dosage: 20 MG/M2, DAYS 1-5 FOR CYCLES 1 AND 2

REACTIONS (6)
  - Enterococcal infection [None]
  - Ulcer [None]
  - Acute kidney injury [None]
  - Toxicity to various agents [None]
  - Neutropenic sepsis [None]
  - Pancytopenia [None]
